FAERS Safety Report 9213998 (Version 1)
Quarter: 2013Q2

REPORT INFORMATION
  Report Type: Spontaneous
  Country: US (occurrence: None)
  Receive Date: 20130404
  Receipt Date: 20130404
  Transmission Date: 20140414
  Serious: No
  Sender: FDA-Public Use
  Company Number: None

PATIENT
  Age: 60 Year
  Sex: Female

DRUGS (1)
  1. FORTEO 600MCG/2.4ML PEN [Suspect]
     Route: 058

REACTIONS (2)
  - Rash generalised [None]
  - Rash pruritic [None]
